FAERS Safety Report 6373001-4 (Version None)
Quarter: 2009Q3

REPORT INFORMATION
  Report Type: 
  Country: None (occurrence: None)
  Receive Date: 20090924
  Receipt Date: 20090410
  Transmission Date: 20100115
  Serious: Yes (Hospitalization, Other)
  Sender: FDA-Public Use
  Company Number: US-ASTRAZENECA-2008UW27654

PATIENT
  Sex: Male
  Weight: 90.7 kg

DRUGS (7)
  1. SEROQUEL [Suspect]
     Indication: MENTAL DISORDER
     Route: 048
     Dates: start: 20051208, end: 20061101
  2. ABILIFY [Concomitant]
  3. GEODON [Concomitant]
  4. ZYPREXA [Concomitant]
  5. DEPAKOTE [Concomitant]
  6. LAMICTAL [Concomitant]
  7. WELLBUTRIN [Concomitant]

REACTIONS (4)
  - DIABETES MELLITUS [None]
  - DIABETIC KETOACIDOSIS [None]
  - MENTAL DISORDER [None]
  - PANCREATITIS [None]
